FAERS Safety Report 23761582 (Version 1)
Quarter: 2024Q2

REPORT INFORMATION
  Report Type: Spontaneous
  Country: US (occurrence: None)
  Receive Date: 20240418
  Receipt Date: 20240418
  Transmission Date: 20240716
  Serious: Yes (Life-Threatening, Hospitalization)
  Sender: FDA-Public Use
  Company Number: None

PATIENT
  Age: 48 Year
  Sex: Male
  Weight: 87.75 kg

DRUGS (3)
  1. DUPIXENT [Suspect]
     Active Substance: DUPILUMAB
     Indication: Nasal polyps
     Dosage: OTHER QUANTITY : 1 INJECTION(S)?OTHER FREQUENCY : 2 WEEKS?
     Route: 058
     Dates: start: 20240404, end: 20240404
  2. DUPIXENT [Suspect]
     Active Substance: DUPILUMAB
     Indication: Prophylaxis
  3. DUPIXENT [Suspect]
     Active Substance: DUPILUMAB
     Indication: Sinusitis

REACTIONS (5)
  - Pain in extremity [None]
  - Rash [None]
  - Pyrexia [None]
  - Myalgia [None]
  - Heart rate increased [None]

NARRATIVE: CASE EVENT DATE: 20240404
